FAERS Safety Report 21246054 (Version 3)
Quarter: 2022Q4

REPORT INFORMATION
  Report Type: Report from Study
  Country: US (occurrence: US)
  Receive Date: 20220824
  Receipt Date: 20221114
  Transmission Date: 20230113
  Serious: Yes (Other)
  Sender: FDA-Public Use
  Company Number: US-NOVARTISPH-NVSC2022US186685

PATIENT
  Age: 29 Year
  Sex: Female
  Weight: 56.7 kg

DRUGS (5)
  1. KESIMPTA [Suspect]
     Active Substance: OFATUMUMAB
     Indication: Multiple sclerosis
     Dosage: UNK
     Route: 058
     Dates: start: 20220627
  2. KESIMPTA [Suspect]
     Active Substance: OFATUMUMAB
     Dosage: 4TH DOSE OF MEDICATION
     Route: 058
     Dates: start: 20220817
  3. GABAPENTIN [Concomitant]
     Active Substance: GABAPENTIN
     Indication: Product used for unknown indication
     Dosage: 600 MG, BID
     Route: 048
  4. KLONOPIN [Concomitant]
     Active Substance: CLONAZEPAM
     Indication: Product used for unknown indication
     Dosage: 0.5 MG, BID
     Route: 048
  5. LEVETIRACETAM [Concomitant]
     Active Substance: LEVETIRACETAM
     Indication: Product used for unknown indication
     Dosage: 500 MG, BID
     Route: 048

REACTIONS (2)
  - Syncope [Unknown]
  - Pallor [Unknown]

NARRATIVE: CASE EVENT DATE: 20220817
